FAERS Safety Report 13702248 (Version 2)
Quarter: 2017Q3

REPORT INFORMATION
  Report Type: Spontaneous
  Country: GB (occurrence: GB)
  Receive Date: 20170629
  Receipt Date: 20170707
  Transmission Date: 20171127
  Serious: Yes (Hospitalization)
  Sender: FDA-Public Use
  Company Number: GB-PFIZER INC-2017033892

PATIENT
  Age: 71 Year
  Sex: Male

DRUGS (2)
  1. AMIODARONE HCL [Suspect]
     Active Substance: AMIODARONE HYDROCHLORIDE
     Indication: ARRHYTHMIA
     Dosage: 200 MG, 2X/DAY
     Dates: start: 1979
  2. BENDROFLUAZIDE [Concomitant]
     Active Substance: BENDROFLUMETHIAZIDE
     Indication: HYPERTENSION
     Dosage: 5 MG, DAILY
     Dates: start: 1980

REACTIONS (7)
  - Photosensitivity reaction [Unknown]
  - Corneal deposits [Unknown]
  - Lung infiltration [Recovering/Resolving]
  - Pigmentation disorder [Unknown]
  - Hypothyroidism [Recovered/Resolved]
  - Bone marrow failure [Unknown]
  - Skin hypertrophy [Unknown]

NARRATIVE: CASE EVENT DATE: 1980
